FAERS Safety Report 13767632 (Version 1)
Quarter: 2017Q3

REPORT INFORMATION
  Report Type: Spontaneous
  Country: US (occurrence: US)
  Receive Date: 20170719
  Receipt Date: 20170719
  Transmission Date: 20171127
  Serious: Yes (Other)
  Sender: FDA-Public Use
  Company Number: US-STRIDES ARCOLAB LIMITED-2017SP005373

PATIENT

DRUGS (3)
  1. MYCOPHENOLATE MOFETIL. [Suspect]
     Active Substance: MYCOPHENOLATE MOFETIL
     Indication: RENAL FAILURE
     Dosage: 0.5G TID
  2. MYCOPHENOLATE MOFETIL. [Suspect]
     Active Substance: MYCOPHENOLATE MOFETIL
     Indication: NEPHROTIC SYNDROME
     Dosage: 0.5 G, TID
     Route: 065
  3. SODIUM [Concomitant]
     Active Substance: SODIUM
     Indication: MEDICAL DIET
     Dosage: 2 G PER DAY
     Route: 065

REACTIONS (2)
  - Off label use [Unknown]
  - Pneumonia [Unknown]
